FAERS Safety Report 15831789 (Version 1)
Quarter: 2019Q1

REPORT INFORMATION
  Report Type: Spontaneous
  Country: GB (occurrence: GB)
  Receive Date: 20190116
  Receipt Date: 20190116
  Transmission Date: 20190417
  Serious: Yes (Other)
  Sender: FDA-Public Use
  Company Number: GB-ACCORD-101920

PATIENT
  Age: 26 Year
  Sex: Female
  Weight: 39 kg

DRUGS (6)
  1. AMITRIPTYLINE [Suspect]
     Active Substance: AMITRIPTYLINE
     Indication: PRODUCT USED FOR UNKNOWN INDICATION
  2. PROPRANOLOL [Concomitant]
     Active Substance: PROPRANOLOL HYDROCHLORIDE
     Dosage: AT NIGHT
     Dates: start: 20180605
  3. LAMOTRIGINE. [Concomitant]
     Active Substance: LAMOTRIGINE
     Dates: start: 20150417
  4. IRON [Concomitant]
     Active Substance: IRON
     Dates: start: 20130903, end: 20180326
  5. MEBEVERINE [Concomitant]
     Active Substance: MEBEVERINE
     Dates: start: 20180309, end: 20180406
  6. FOLIC ACID. [Concomitant]
     Active Substance: FOLIC ACID
     Dates: start: 20130903, end: 20180326

REACTIONS (2)
  - Palpitations [Recovered/Resolved]
  - Electrocardiogram QT prolonged [Unknown]

NARRATIVE: CASE EVENT DATE: 20180608
